FAERS Safety Report 22249101 (Version 1)
Quarter: 2023Q2

REPORT INFORMATION
  Report Type: Spontaneous
  Country: US (occurrence: None)
  Receive Date: 20230424
  Receipt Date: 20230424
  Transmission Date: 20230721
  Serious: Yes (Other)
  Sender: FDA-Public Use
  Company Number: None

PATIENT
  Age: 59 Year
  Sex: Female
  Weight: 53.1 kg

DRUGS (6)
  1. PLAQUENIL [Suspect]
     Active Substance: HYDROXYCHLOROQUINE SULFATE
     Indication: Rheumatoid arthritis
     Dosage: OTHER QUANTITY : 1 TABLET(S);?FREQUENCY : TWICE A DAY;?
     Route: 048
     Dates: start: 20170101, end: 20221209
  2. ORENCIA [Concomitant]
     Active Substance: ABATACEPT
  3. Nortripltyline [Concomitant]
  4. TYRVAYA [Concomitant]
     Active Substance: VARENICLINE TARTRATE
  5. MINERALS\VITAMINS [Concomitant]
     Active Substance: MINERALS\VITAMINS
  6. VITAMIN D3 [Concomitant]
     Active Substance: CHOLECALCIFEROL

REACTIONS (3)
  - Visual field defect [None]
  - Macular degeneration [None]
  - Toxicity to various agents [None]

NARRATIVE: CASE EVENT DATE: 20221209
